FAERS Safety Report 6908237-4 (Version None)
Quarter: 2010Q3

REPORT INFORMATION
  Report Type: 
  Country: None (occurrence: None)
  Receive Date: 20100805
  Receipt Date: 20100727
  Transmission Date: 20110219
  Serious: Yes (Other)
  Sender: FDA-Public Use
  Company Number: US-ROCHE-705143

PATIENT
  Sex: Female

DRUGS (18)
  1. XELODA [Suspect]
     Dosage: TWO CYCLES
     Route: 065
     Dates: start: 20081218, end: 20090107
  2. XELODA [Suspect]
     Dosage: TWO TABLETS IN MORNING
     Route: 065
     Dates: start: 20100506
  3. AVASTIN [Suspect]
     Route: 065
     Dates: start: 20070801, end: 20070901
  4. AVASTIN [Suspect]
     Route: 065
     Dates: start: 20071001
  5. AVASTIN [Suspect]
     Route: 065
     Dates: start: 20081218, end: 20090107
  6. AVASTIN [Suspect]
     Route: 065
     Dates: start: 20090128, end: 20090513
  7. AVASTIN [Suspect]
     Route: 065
     Dates: start: 20090527, end: 20090901
  8. AVASTIN [Suspect]
     Route: 065
     Dates: start: 20100505
  9. OXALIPLATIN [Suspect]
     Route: 065
     Dates: start: 20070601, end: 20071001
  10. OXALIPLATIN [Suspect]
     Route: 065
     Dates: start: 20081218, end: 20090107
  11. OXALIPLATIN [Suspect]
     Dosage: 7 CYCLES
     Route: 065
     Dates: start: 20090128, end: 20090513
  12. OXALIPLATIN [Suspect]
     Dosage: DOSE LOWERED
     Route: 065
  13. FLUOROURACIL [Suspect]
     Dosage: 7 CYCLES
     Route: 065
     Dates: start: 20090128, end: 20090513
  14. FLUOROURACIL [Suspect]
     Dosage: BOLUS
     Route: 065
     Dates: start: 20090527, end: 20090901
  15. LEUCOVORIN CALCIUM [Suspect]
     Dosage: 7 CYCLES
     Route: 065
     Dates: start: 20090128, end: 20090513
  16. LEUCOVORIN CALCIUM [Suspect]
     Route: 065
     Dates: start: 20090527, end: 20090901
  17. IRINOTECAN HCL [Suspect]
     Route: 065
     Dates: start: 20100505
  18. ZOFRAN [Concomitant]

REACTIONS (19)
  - ABDOMINAL PAIN UPPER [None]
  - APHAGIA [None]
  - BACK PAIN [None]
  - DEFORMITY [None]
  - DRUG HYPERSENSITIVITY [None]
  - DRUG INTOLERANCE [None]
  - EPISTAXIS [None]
  - FATIGUE [None]
  - MALIGNANT NEOPLASM PROGRESSION [None]
  - NEPHROLITHIASIS [None]
  - NEUROPATHY PERIPHERAL [None]
  - PAIN IN EXTREMITY [None]
  - PARAESTHESIA [None]
  - SKIN EXFOLIATION [None]
  - STOMATITIS [None]
  - TREMOR [None]
  - VOMITING [None]
  - WEIGHT DECREASED [None]
  - WOUND DEHISCENCE [None]
